FAERS Safety Report 5930340-6 (Version None)
Quarter: 2008Q4

REPORT INFORMATION
  Report Type: 
  Country: None (occurrence: None)
  Receive Date: 20081023
  Receipt Date: 20081007
  Transmission Date: 20090506
  Serious: Yes (Hospitalization)
  Sender: FDA-Public Use
  Company Number: 2008AL010242

PATIENT
  Age: 65 Year
  Sex: Female

DRUGS (10)
  1. HYDROCHLOROTHIAZIDE [Suspect]
     Indication: HYPERTENSION
     Dosage: 25 MG; PO
     Route: 048
     Dates: end: 20080722
  2. LOSARTAN POTASSIUM [Concomitant]
  3. LANSOPRAZOLE [Concomitant]
  4. ACETYLSALICYLIC ACID SRT [Concomitant]
  5. SIMVASTATIN [Concomitant]
  6. FERROUS SULFATE TAB [Concomitant]
  7. IBUPROFEN TABLETS [Concomitant]
  8. AMLODIPINE [Concomitant]
  9. DOXAZOSIN MESYLATE [Concomitant]
  10. ACETAMINOPHEN W/ CODEINE [Concomitant]

REACTIONS (2)
  - ANAPHYLACTOID REACTION [None]
  - ANGIOEDEMA [None]
